FAERS Safety Report 6812144-5 (Version None)
Quarter: 2010Q3

REPORT INFORMATION
  Report Type: 
  Country: None (occurrence: None)
  Receive Date: 20100701
  Receipt Date: 20100310
  Transmission Date: 20110219
  Serious: No
  Sender: FDA-Public Use
  Company Number: US-ABBOTT-10P-163-0632244-00

PATIENT
  Age: 38 Year
  Sex: Female

DRUGS (2)
  1. NORVIR [Suspect]
     Indication: HIV TEST POSITIVE
     Route: 048
  2. REYATAZ [Suspect]
     Indication: PRODUCT USED FOR UNKNOWN INDICATION

REACTIONS (1)
  - HEPATITIS [None]
